FAERS Safety Report 8807020 (Version 1)
Quarter: 2012Q4

REPORT INFORMATION
  Report Type: 
  Country: US (occurrence: US)
  Receive Date: 20120925
  Receipt Date: 20120925
  Transmission Date: 20130627
  Serious: Yes (Other)
  Sender: FDA-Public Use
  Company Number: PHEH2012US018336

PATIENT
  Sex: Female

DRUGS (3)
  1. GILENYA [Suspect]
     Indication: MULTIPLE SCLEROSIS
     Dosage: 0.5 mg, QD
     Route: 048
     Dates: start: 20120620
  2. ST. JOHN^S WORT [Concomitant]
  3. CRESTOR [Concomitant]
     Dates: start: 20120907

REACTIONS (3)
  - Coronary artery occlusion [Unknown]
  - Depression [Unknown]
  - Crying [Unknown]
